FAERS Safety Report 13354935 (Version 1)
Quarter: 2017Q1

REPORT INFORMATION
  Report Type: Report from Study
  Country: US (occurrence: US)
  Receive Date: 20170321
  Receipt Date: 20170321
  Transmission Date: 20170429
  Serious: Yes (Other)
  Sender: FDA-Public Use
  Company Number: US-TORRENT-00002602

PATIENT
  Age: 7 Decade
  Sex: Male

DRUGS (3)
  1. NICOTINIC ACID [Suspect]
     Active Substance: NIACIN
  2. ROSUVASTATIN. [Suspect]
     Active Substance: ROSUVASTATIN
  3. EZETIMIBE. [Suspect]
     Active Substance: EZETIMIBE

REACTIONS (3)
  - Muscular weakness [Recovering/Resolving]
  - Myalgia [Recovering/Resolving]
  - Mitochondrial myopathy [Recovering/Resolving]
